FAERS Safety Report 16181111 (Version 1)
Quarter: 2019Q2

REPORT INFORMATION
  Report Type: Spontaneous
  Country: JP (occurrence: JP)
  Receive Date: 20190410
  Receipt Date: 20190410
  Transmission Date: 20190711
  Serious: Yes (Death)
  Sender: FDA-Public Use
  Company Number: JP-SHIONOGI, INC-2019000324

PATIENT
  Age: 70 Year
  Sex: Male

DRUGS (4)
  1. SYMPROIC [Suspect]
     Active Substance: NALDEMEDINE
     Indication: CONSTIPATION
     Dosage: 0.2 MG, QD
     Route: 048
  2. SYMPROIC [Suspect]
     Active Substance: NALDEMEDINE
     Dosage: 0.4 MG, QD
     Route: 048
     Dates: end: 201903
  3. OXYCONTIN [Concomitant]
     Active Substance: OXYCODONE HYDROCHLORIDE
     Indication: CANCER PAIN
     Dosage: UNK
     Route: 048
  4. OXYCONTIN [Concomitant]
     Active Substance: OXYCODONE HYDROCHLORIDE
     Dosage: 100 MG, QD
     Route: 048
     Dates: end: 201903

REACTIONS (2)
  - Lung neoplasm malignant [Fatal]
  - Prescribed overdose [Unknown]
